FAERS Safety Report 8764473 (Version 1)
Quarter: 2012Q4

REPORT INFORMATION
  Report Type: 
  Country: US (occurrence: US)
  Receive Date: 20120831
  Receipt Date: 20120831
  Transmission Date: 20130627
  Serious: Yes (Other)
  Sender: FDA-Public Use
  Company Number: CHPA2012US018851

PATIENT
  Age: 80 Year
  Sex: Male

DRUGS (7)
  1. MAALOX ADV MAXIMUM STRENGTH ANTACID/ANTIGAS CHEWABLE [Suspect]
     Indication: DYSPEPSIA
     Dosage: 2 DF, AT NIGHT
     Route: 048
     Dates: start: 2008
  2. SIMVASTATIN [Concomitant]
     Dosage: Unk, Unk
  3. ATROVENT [Concomitant]
     Indication: NASAL CONGESTION
     Dosage: Unk, Unk
  4. CENTRUM [Concomitant]
     Dosage: Unk, DAILY
  5. BABY ASPIRIN [Concomitant]
     Dosage: Unk, Unk
  6. OMEPRAZOLE [Concomitant]
     Dosage: Unk, DAILY
     Route: 048
  7. KENALOG [Concomitant]
     Indication: RASH
     Dosage: Unk, Unk

REACTIONS (5)
  - Prostatomegaly [Not Recovered/Not Resolved]
  - Hypertension [Not Recovered/Not Resolved]
  - Blood cholesterol increased [Not Recovered/Not Resolved]
  - Disease recurrence [Not Recovered/Not Resolved]
  - Incorrect drug administration duration [Unknown]
